FAERS Safety Report 4595990-0 (Version None)
Quarter: 2005Q1

REPORT INFORMATION
  Report Type: 
  Country: None (occurrence: None)
  Receive Date: 20050224
  Receipt Date: 20050202
  Transmission Date: 20050727
  Serious: Yes (Hospitalization, Other)
  Sender: FDA-Public Use
  Company Number: GBS050216595

PATIENT
  Age: 69 Year
  Sex: Male

DRUGS (2)
  1. CIALIS [Suspect]
     Indication: ERECTILE DYSFUNCTION
     Dosage: 20 MG AS NEEDED
  2. WARFARIN SODIUM [Concomitant]

REACTIONS (3)
  - CARDIOVERSION [None]
  - HEART VALVE REPLACEMENT [None]
  - INTERNATIONAL NORMALISED RATIO INCREASED [None]
